FAERS Safety Report 10174234 (Version 1)
Quarter: 2014Q2

REPORT INFORMATION
  Report Type: Spontaneous
  Country: JP (occurrence: JP)
  Receive Date: 20140515
  Receipt Date: 20140515
  Transmission Date: 20141212
  Serious: Yes (Hospitalization)
  Sender: FDA-Public Use
  Company Number: JP-009507513-1405JPN007430

PATIENT
  Age: 70 Year
  Sex: Female

DRUGS (3)
  1. PEGINTRON [Suspect]
     Dosage: DAILY DOSE UNKNOWN
     Route: 058
     Dates: start: 201404
  2. REBETOL [Suspect]
     Dosage: UNK
     Dates: start: 201404
  3. SIMEPREVIR [Suspect]
     Dosage: 100 MG, QD

REACTIONS (2)
  - C-reactive protein increased [Unknown]
  - Pyrexia [Unknown]
